FAERS Safety Report 7794628-9 (Version None)
Quarter: 2011Q4

REPORT INFORMATION
  Report Type: 
  Country: None (occurrence: None)
  Receive Date: 20111003
  Receipt Date: 20111003
  Transmission Date: 20120403
  Serious: Yes (Life-Threatening, Hospitalization)
  Sender: FDA-Public Use
  Company Number: None

PATIENT
  Age: 66 Year
  Sex: Male
  Weight: 105.7 kg

DRUGS (4)
  1. SIMVASTATIN [Suspect]
     Indication: HYPERLIPIDAEMIA
     Dosage: 80 MG AT BEDTIME PO ; 400 MG EVERY DAY IV
     Route: 048
     Dates: start: 20110107, end: 20110210
  2. SIMVASTATIN [Suspect]
     Indication: INFECTION
     Dosage: 80 MG AT BEDTIME PO ; 400 MG EVERY DAY IV
     Route: 048
     Dates: start: 20110107, end: 20110210
  3. SIMVASTATIN [Suspect]
     Indication: HYPERLIPIDAEMIA
     Dosage: 80 MG AT BEDTIME PO ; 400 MG EVERY DAY IV
     Route: 048
     Dates: start: 20110202, end: 20110208
  4. SIMVASTATIN [Suspect]
     Indication: INFECTION
     Dosage: 80 MG AT BEDTIME PO ; 400 MG EVERY DAY IV
     Route: 048
     Dates: start: 20110202, end: 20110208

REACTIONS (3)
  - MYOSITIS [None]
  - RHABDOMYOLYSIS [None]
  - DRUG INTERACTION [None]
